FAERS Safety Report 8885887 (Version 1)
Quarter: 2012Q4

REPORT INFORMATION
  Report Type: Report from Study
  Country: BE (occurrence: BE)
  Receive Date: 20121105
  Receipt Date: 20121105
  Transmission Date: 20130627
  Serious: Yes (Hospitalization, Other)
  Sender: FDA-Public Use
  Company Number: PHHO2011BE07763

PATIENT
  Age: 69 Year
  Sex: Male
  Weight: 102 kg

DRUGS (7)
  1. ALISKIREN [Suspect]
     Indication: CARDIAC FAILURE ACUTE
     Route: 048
     Dates: start: 20110323, end: 20110422
  2. ALISKIREN [Suspect]
     Route: 048
     Dates: start: 20110407, end: 20110422
  3. ALISKIREN [Suspect]
     Route: 048
     Dates: start: 20110618
  4. ZESTRIL [Suspect]
     Indication: CARDIAC FAILURE
     Dosage: 20 mg, QD
     Dates: end: 20110421
  5. EMCONCOR [Concomitant]
     Dosage: 5 mg, QD
  6. BURINEX [Concomitant]
     Indication: CARDIAC FAILURE
     Dosage: 1 mg, EOD
     Dates: start: 201106
  7. ALDACTONE [Concomitant]
     Indication: CARDIAC FAILURE
     Dosage: 25 mg, QD
     Dates: start: 201106

REACTIONS (3)
  - Renal failure acute [Recovered/Resolved]
  - Device dislocation [Recovered/Resolved]
  - Left atrial dilatation [Recovered/Resolved]
